FAERS Safety Report 8290225-X (Version None)
Quarter: 2012Q2

REPORT INFORMATION
  Report Type: 
  Country: None (occurrence: None)
  Receive Date: 20120417
  Receipt Date: 20120411
  Transmission Date: 20120825
  Serious: Yes (Hospitalization)
  Sender: FDA-Public Use
  Company Number: US-ABBOTT-12P-163-0925393-00

PATIENT
  Sex: Female
  Weight: 66.284 kg

DRUGS (1)
  1. HUMIRA [Suspect]
     Indication: CROHN'S DISEASE
     Dates: start: 20111101, end: 20120301

REACTIONS (13)
  - GAIT DISTURBANCE [None]
  - CYSTITIS [None]
  - BLOOD POTASSIUM DECREASED [None]
  - BLADDER DISCOMFORT [None]
  - KIDNEY INFECTION [None]
  - PYREXIA [None]
  - FALL [None]
  - POLLAKIURIA [None]
  - DIARRHOEA [None]
  - FLATULENCE [None]
  - WEIGHT DECREASED [None]
  - BLOOD CALCIUM DECREASED [None]
  - BLOOD MAGNESIUM DECREASED [None]
